FAERS Safety Report 9991555 (Version 1)
Quarter: 2014Q1

REPORT INFORMATION
  Report Type: Spontaneous
  Country: ES (occurrence: ES)
  Receive Date: 20140310
  Receipt Date: 20140310
  Transmission Date: 20141002
  Serious: Yes (Hospitalization)
  Sender: FDA-Public Use
  Company Number: ES-MYLANLABS-2014S1004515

PATIENT
  Age: 33 Year
  Sex: Female

DRUGS (6)
  1. AZATHIOPRINE [Suspect]
     Indication: SYSTEMIC LUPUS ERYTHEMATOSUS
     Dosage: 125 MG/DAY
     Route: 065
     Dates: start: 2004
  2. AZATHIOPRINE [Suspect]
     Indication: OFF LABEL USE
     Dosage: 125 MG/DAY
     Route: 065
     Dates: start: 2004
  3. ASPIRIN [Concomitant]
     Dosage: 100 MG/DAY
     Route: 065
     Dates: start: 2004
  4. CALCIUM CARBONATE [Concomitant]
     Dosage: 1 TABLET/DAY
     Route: 048
     Dates: start: 2004
  5. METHYLPREDNISOLONE [Concomitant]
     Dosage: 4 MG/DAY
     Route: 065
     Dates: start: 2004
  6. HYDROXYCHLOROQUINE [Concomitant]
     Dosage: 200 MG/DAY
     Route: 065
     Dates: start: 2006

REACTIONS (3)
  - Pancreatitis acute [Recovered/Resolved]
  - Pyrexia [Unknown]
  - Oropharyngeal pain [Unknown]
